FAERS Safety Report 4610719-5 (Version None)
Quarter: 2005Q2

REPORT INFORMATION
  Report Type: 
  Country: None (occurrence: None)
  Receive Date: 20050228
  Receipt Date: 20040713
  Transmission Date: 20051028
  Serious: No
  Sender: FDA-Public Use
  Company Number: 207795

PATIENT
  Age: 17 Year
  Sex: Male
  Weight: 54.6 kg

DRUGS (2)
  1. NUTROPIN AQ [Suspect]
     Indication: GROWTH HORMONE DEFICIENCY
     Dosage: 3MG, QD; SUBCUTANEOUS
     Route: 058
     Dates: start: 20010706
  2. DEXTROSTAT (DEXTROAMPHETAMINE SULFATE) [Concomitant]

REACTIONS (1)
  - SCOLIOSIS [None]
